FAERS Safety Report 22277918 (Version 1)
Quarter: 2023Q2

REPORT INFORMATION
  Report Type: Spontaneous
  Country: US (occurrence: US)
  Receive Date: 20230503
  Receipt Date: 20230503
  Transmission Date: 20230721
  Serious: Yes (Other)
  Sender: FDA-Public Use
  Company Number: US-BRISTOL-MYERS SQUIBB COMPANY-2023-060161

PATIENT
  Age: 65 Year
  Sex: Male
  Weight: 110.09 kg

DRUGS (2)
  1. REVLIMID [Suspect]
     Active Substance: LENALIDOMIDE
     Indication: Plasma cell myeloma
     Dosage: 1 DAILY 14 DAYS ON 7 DAYS OFF
     Route: 048
     Dates: start: 202302
  2. REVLIMID [Suspect]
     Active Substance: LENALIDOMIDE
     Dosage: 15MG 1 EVERY OTHER DAY FOR 14 DAYS ON 7 DAYS OFF
     Route: 048

REACTIONS (2)
  - Acute kidney injury [Unknown]
  - Off label use [Unknown]
